FAERS Safety Report 8988768 (Version 1)
Quarter: 2012Q4

REPORT INFORMATION
  Report Type: 
  Country: US (occurrence: US)
  Receive Date: 20121228
  Receipt Date: 20121228
  Transmission Date: 20130627
  Serious: Yes (Hospitalization, Other)
  Sender: FDA-Public Use
  Company Number: US-BRISTOL-MYERS SQUIBB COMPANY-17227596

PATIENT
  Age: 79 Year
  Sex: Female

DRUGS (10)
  1. COUMADIN [Suspect]
     Indication: DEEP VEIN THROMBOSIS
     Dosage: last inf:14Nov12
     Dates: start: 20121031
  2. SOLIRIS [Suspect]
     Indication: PAROXYSMAL NOCTURNAL HAEMOGLOBINURIA
     Dosage: strength: 300mg, soln for inf 10mg/ml
     Route: 042
  3. ACYCLOVIR [Concomitant]
  4. FLUCONAZOLE [Concomitant]
  5. LACTULOSE [Concomitant]
  6. NEXIUM [Concomitant]
  7. NITROFURANTOIN [Concomitant]
  8. SENNA [Concomitant]
  9. BACTRIM [Concomitant]
  10. TYLENOL [Concomitant]

REACTIONS (6)
  - Gastrointestinal haemorrhage [Recovered/Resolved]
  - Adenocarcinoma of colon [Unknown]
  - Large intestine polyp [Unknown]
  - Diverticulum intestinal [Unknown]
  - Haemorrhoids [Unknown]
  - Anaemia [Unknown]
